FAERS Safety Report 12882475 (Version 1)
Quarter: 2016Q4

REPORT INFORMATION
  Report Type: Spontaneous
  Country: RU (occurrence: RU)
  Receive Date: 20161025
  Receipt Date: 20161025
  Transmission Date: 20170207
  Serious: Yes (Other)
  Sender: FDA-Public Use
  Company Number: RU-JNJFOC-20160930024

PATIENT

DRUGS (4)
  1. MERCAPTOPURINE. [Concomitant]
     Active Substance: MERCAPTOPURINE
     Dosage: 2.0-1.5 MG/KG
     Route: 065
  2. INFLIXIMAB, RECOMBINANT [Suspect]
     Active Substance: INFLIXIMAB
     Indication: COLITIS ULCERATIVE
     Route: 042
  3. 5-ASA [Concomitant]
     Active Substance: MESALAMINE
     Route: 065
  4. AZATHIOPRINE. [Concomitant]
     Active Substance: AZATHIOPRINE
     Dosage: 2.0-1.5 MG/KG
     Route: 065

REACTIONS (9)
  - Colitis ulcerative [Unknown]
  - Hypersensitivity [Unknown]
  - Drug ineffective [Unknown]
  - Drug specific antibody present [Unknown]
  - Angioedema [Unknown]
  - Drug intolerance [Unknown]
  - Infection [Unknown]
  - Tuberculosis [Unknown]
  - Infusion related reaction [Unknown]
